APPROVED DRUG PRODUCT: MEGESTROL ACETATE
Active Ingredient: MEGESTROL ACETATE
Strength: 40MG
Dosage Form/Route: TABLET;ORAL
Application: A070647 | Product #001
Applicant: USL PHARMA INC
Approved: Oct 2, 1987 | RLD: No | RS: No | Type: DISCN